FAERS Safety Report 22233064 (Version 1)
Quarter: 2023Q2

REPORT INFORMATION
  Report Type: Spontaneous
  Country: US (occurrence: None)
  Receive Date: 20230420
  Receipt Date: 20230420
  Transmission Date: 20230722
  Serious: No
  Sender: FDA-Public Use
  Company Number: US-ROCHE-3080748

PATIENT
  Sex: Male
  Weight: 114.3 kg

DRUGS (3)
  1. ESBRIET [Suspect]
     Active Substance: PIRFENIDONE
     Indication: Product used for unknown indication
     Route: 065
  2. TYVASO [Suspect]
     Active Substance: TREPROSTINIL
     Indication: Pulmonary arterial hypertension
     Dosage: (TREPROSTINIL SODIUM) INHALATION GAS, 0.6 MG/ML, 18 TO  72 MCG (3 TO 12 BREATHS)
     Route: 065
     Dates: start: 20210929
  3. REVATIO [Concomitant]
     Active Substance: SILDENAFIL CITRATE

REACTIONS (4)
  - Cough [Unknown]
  - Vomiting [Unknown]
  - Therapy non-responder [Unknown]
  - Hepatic enzyme increased [Unknown]
